FAERS Safety Report 10194728 (Version 1)
Quarter: 2014Q2

REPORT INFORMATION
  Report Type: Spontaneous
  Country: FR (occurrence: FR)
  Receive Date: 20140526
  Receipt Date: 20140526
  Transmission Date: 20141212
  Serious: Yes (Hospitalization)
  Sender: FDA-Public Use
  Company Number: FR-BRISTOL-MYERS SQUIBB COMPANY-20750725

PATIENT
  Age: 90 Year
  Sex: Female

DRUGS (1)
  1. COUMADINE [Suspect]
     Dosage: STRENGTH:2MG, 1DF:1 UNIT NOS
     Route: 048

REACTIONS (2)
  - Muscle haemorrhage [Recovering/Resolving]
  - Haemoglobin decreased [Unknown]
